FAERS Safety Report 6300375-2 (Version None)
Quarter: 2009Q3

REPORT INFORMATION
  Report Type: 
  Country: None (occurrence: None)
  Receive Date: 20090806
  Receipt Date: 20080811
  Transmission Date: 20100115
  Serious: No
  Sender: FDA-Public Use
  Company Number: US-ABBOTT-08P-163-0469938-00

PATIENT
  Sex: Female
  Weight: 27.24 kg

DRUGS (4)
  1. DEPAKOTE ER [Suspect]
     Indication: BIPOLAR DISORDER
     Route: 048
     Dates: start: 20060101
  2. OBETROL [Suspect]
     Indication: ATTENTION DEFICIT/HYPERACTIVITY DISORDER
     Route: 048
     Dates: start: 20070101
  3. LAMOTRIGINE [Concomitant]
     Indication: DEPRESSION
     Route: 048
     Dates: start: 20050101
  4. ARIPIPRAZOLE [Concomitant]
     Indication: DEPRESSION
     Route: 048
     Dates: start: 20080501

REACTIONS (3)
  - ABDOMINAL PAIN UPPER [None]
  - DECREASED APPETITE [None]
  - DIARRHOEA [None]
